FAERS Safety Report 8536502-6 (Version None)
Quarter: 2012Q3

REPORT INFORMATION
  Report Type: 
  Country: None (occurrence: None)
  Receive Date: 20120725
  Receipt Date: 20120724
  Transmission Date: 20120928
  Serious: Yes (Death, Other)
  Sender: FDA-Public Use
  Company Number: PHHY2012NL063670

PATIENT
  Sex: Female
  Weight: 75 kg

DRUGS (2)
  1. CLOZAPINE [Suspect]
     Indication: DEMENTIA
     Dosage: 12.5 MG, TWICE DAILY
     Dates: start: 20120423, end: 20120604
  2. EXELON [Concomitant]
     Dosage: 4.6 MG, QD

REACTIONS (5)
  - AGRANULOCYTOSIS [None]
  - HYPOPHAGIA [None]
  - RENAL DISORDER [None]
  - LEUKOPENIA [None]
  - SOMNOLENCE [None]
